FAERS Safety Report 10148181 (Version 1)
Quarter: 2014Q2

REPORT INFORMATION
  Report Type: Spontaneous
  Country: PL (occurrence: PL)
  Receive Date: 20140501
  Receipt Date: 20140501
  Transmission Date: 20141212
  Serious: Yes (Hospitalization, Other)
  Sender: FDA-Public Use
  Company Number: PL-009507513-1404POL012800

PATIENT
  Age: 65 Year
  Sex: Male
  Weight: 81 kg

DRUGS (10)
  1. VICTRELIS [Suspect]
     Indication: HEPATITIS C
     Dosage: 800 MG, TID
     Route: 048
     Dates: start: 20131018
  2. COPEGUS [Suspect]
     Indication: HEPATITIS C
     Dosage: UNK MG, UNK
     Route: 048
     Dates: start: 20130919
  3. COPEGUS [Suspect]
     Dosage: 800 UNK, UNK
     Route: 048
  4. PEGASYS [Suspect]
     Indication: HEPATITIS C
     Dosage: 135 MICROGRAM, QW
     Route: 058
     Dates: start: 20130919
  5. PEGASYS [Suspect]
     Dosage: 90 MICROGRAM, UNK
     Route: 058
  6. PROPRANOLOL HYDROCHLORIDE [Concomitant]
     Indication: VARICES OESOPHAGEAL
     Dosage: 20 MG, QD
     Dates: start: 2011
  7. DIURESIN SR [Concomitant]
     Indication: HEPATIC CIRRHOSIS
     Dosage: 1.5 MG, QD
     Dates: start: 2011
  8. DIURESIN SR [Concomitant]
     Indication: HYPERTENSION
  9. HUMALOG MIX 50 [Concomitant]
     Indication: TYPE 2 DIABETES MELLITUS
     Dosage: 45 DF, QD
     Dates: start: 2011
  10. HEPA-MERZ [Concomitant]
     Indication: HEPATIC CIRRHOSIS
     Dosage: 3.0 G, QD
     Dates: start: 2011

REACTIONS (1)
  - Urosepsis [Recovered/Resolved]
